FAERS Safety Report 23545274 (Version 1)
Quarter: 2024Q1

REPORT INFORMATION
  Report Type: Spontaneous
  Country: FR (occurrence: FR)
  Receive Date: 20240220
  Receipt Date: 20240220
  Transmission Date: 20240409
  Serious: Yes (Other)
  Sender: FDA-Public Use
  Company Number: FR-BRISTOL-MYERS SQUIBB COMPANY-2024-008913

PATIENT
  Age: 54 Year
  Sex: Male

DRUGS (1)
  1. OPDIVO [Suspect]
     Active Substance: NIVOLUMAB
     Indication: Renal disorder

REACTIONS (8)
  - Dyspnoea [Unknown]
  - Fatigue [Not Recovered/Not Resolved]
  - Dry skin [Unknown]
  - Cerebrovascular accident [Unknown]
  - Haematoma [Unknown]
  - Visual impairment [Unknown]
  - Coronary artery disease [Unknown]
  - Off label use [Unknown]
